FAERS Safety Report 7439403-X (Version None)
Quarter: 2011Q2

REPORT INFORMATION
  Report Type: 
  Country: None (occurrence: None)
  Receive Date: 20110427
  Receipt Date: 20110420
  Transmission Date: 20111010
  Serious: Yes (Hospitalization)
  Sender: FDA-Public Use
  Company Number: US-SHIRE-SPV1-2011-00669

PATIENT
  Sex: Female
  Weight: 68.027 kg

DRUGS (1)
  1. VYVANSE [Suspect]
     Indication: PRODUCT USED FOR UNKNOWN INDICATION
     Dosage: 100 MG, 1X/DAY:QD
     Route: 048
     Dates: start: 20100901

REACTIONS (3)
  - NEPHROLITHIASIS [None]
  - OVERDOSE [None]
  - BLOOD PRESSURE INCREASED [None]
